FAERS Safety Report 18791198 (Version 2)
Quarter: 2021Q1

REPORT INFORMATION
  Report Type: Spontaneous
  Country: KR (occurrence: KR)
  Receive Date: 20210126
  Receipt Date: 20210210
  Transmission Date: 20210419
  Serious: Yes (Death, Other)
  Sender: FDA-Public Use
  Company Number: KR-GILEAD-2021-0514113

PATIENT
  Sex: Female
  Weight: 54 kg

DRUGS (37)
  1. VENTOLIN NEBULAS [Concomitant]
     Active Substance: ALBUTEROL SULFATE
     Indication: DYSPNOEA
  2. ATROVENT [Concomitant]
     Active Substance: IPRATROPIUM BROMIDE
     Indication: DYSPNOEA
  3. ATIVAN [Concomitant]
     Active Substance: LORAZEPAM
     Indication: SEDATION
  4. SODIUM BICARBONATE. [Concomitant]
     Active Substance: SODIUM BICARBONATE
     Indication: ACIDOSIS
  5. PLASMA SOLUTION A [Concomitant]
     Indication: ACIDOSIS
  6. CALCIUM CHLORIDE. [Concomitant]
     Active Substance: CALCIUM CHLORIDE
     Indication: HYPOCALCAEMIA
  7. DEXAMETHASONE. [Concomitant]
     Active Substance: DEXAMETHASONE
     Indication: PNEUMONIA
  8. WINUF PERI [Concomitant]
     Active Substance: AMINO ACIDS\DEXTROSE\ELECTROLYTES NOS\SOYBEAN OIL\VITAMINS
  9. VASOPRESSIN. [Concomitant]
     Active Substance: VASOPRESSIN
  10. VEKLURY [Suspect]
     Active Substance: REMDESIVIR
     Indication: COVID-19 PNEUMONIA
     Dosage: UNK
     Route: 042
     Dates: start: 20210102, end: 20210106
  11. LASIX [Concomitant]
     Active Substance: FUROSEMIDE
     Indication: OEDEMA
  12. MUCOMYST [Concomitant]
     Active Substance: ACETYLCYSTEINE
     Indication: DYSPNOEA
  13. PERATAM [Concomitant]
     Indication: PNEUMONIA
  14. ATIVAN [Concomitant]
     Active Substance: LORAZEPAM
     Indication: ANXIETY
  15. PRECEDEX [Concomitant]
     Active Substance: DEXMEDETOMIDINE HYDROCHLORIDE
     Indication: SEDATION
  16. NORPIN [NOREPINEPHRINE] [Concomitant]
     Indication: ARRHYTHMIA
  17. MEROPEN [MEROPENEM] [Concomitant]
     Active Substance: MEROPENEM
     Indication: PNEUMONIA
  18. CALCIUM CHLORIDE. [Concomitant]
     Active Substance: CALCIUM CHLORIDE
     Indication: BLOOD ALBUMIN DECREASED
  19. TAMIPOOL [Concomitant]
     Active Substance: VITAMINS
  20. ATRA [PARACETAMOL;TRAMADOL HYDROCHLORIDE] [Concomitant]
  21. NORMAL SALINE [Concomitant]
     Active Substance: SODIUM CHLORIDE
  22. TRIDOL [Concomitant]
     Active Substance: TRAMADOL HYDROCHLORIDE
     Indication: PAIN
  23. DEXTROSE 5% [Concomitant]
     Active Substance: DEXTROSE
  24. HERBEN [Concomitant]
     Active Substance: DILTIAZEM HYDROCHLORIDE
     Indication: HYPERTENSION
  25. EPINEPHRINE. [Concomitant]
     Active Substance: EPINEPHRINE
     Indication: HYPOTENSION
  26. NOVORAPID [Concomitant]
     Active Substance: INSULIN ASPART
     Indication: BLOOD INSULIN DECREASED
  27. NORVASC [Concomitant]
     Active Substance: AMLODIPINE BESYLATE
     Indication: HYPERTENSION
  28. SINGULAIR [Concomitant]
     Active Substance: MONTELUKAST SODIUM
     Indication: ASTHMA
  29. ULTIAN [Concomitant]
  30. SUCCINYLCHOLINE [SUXAMETHONIUM CHLORIDE] [Concomitant]
     Active Substance: SUCCINYLCHOLINE
     Indication: HYPOTONIA
  31. FOSTER [Concomitant]
     Active Substance: BECLOMETHASONE\FORMOTEROL
  32. COZAAR [Concomitant]
     Active Substance: LOSARTAN POTASSIUM
     Indication: PNEUMONIA
  33. ETOMIDATE LIPURO [Concomitant]
     Active Substance: ETOMIDATE
     Indication: ANAESTHESIA
  34. LIDOCAIN [LIDOCAINE] [Concomitant]
     Active Substance: LIDOCAINE
  35. ATRA [PARACETAMOL;TRAMADOL HYDROCHLORIDE] [Concomitant]
  36. MIDACUM [Concomitant]
     Indication: SEDATION
  37. HUMALOG [Concomitant]
     Active Substance: INSULIN LISPRO

REACTIONS (2)
  - Shock [Not Recovered/Not Resolved]
  - Acute respiratory distress syndrome [Fatal]
